FAERS Safety Report 24109355 (Version 1)
Quarter: 2024Q3

REPORT INFORMATION
  Report Type: Spontaneous
  Country: CN (occurrence: CN)
  Receive Date: 20240718
  Receipt Date: 20240718
  Transmission Date: 20241017
  Serious: Yes (Hospitalization, Disabling)
  Sender: BEIGENE
  Company Number: CN-BEIGENE-BGN-2024-010783

PATIENT

DRUGS (3)
  1. TISLELIZUMAB [Suspect]
     Active Substance: TISLELIZUMAB
     Indication: Keratinising squamous cell carcinoma of nasopharynx
     Dosage: 200 MILLIGRAM
     Route: 041
     Dates: start: 20240603
  2. NEDAPLATIN [Suspect]
     Active Substance: NEDAPLATIN
     Indication: Keratinising squamous cell carcinoma of nasopharynx
     Dosage: 30 MILLIGRAM, D1-3
     Route: 041
     Dates: start: 20240603
  3. GEMCITABINE HYDROCHLORIDE [Suspect]
     Active Substance: GEMCITABINE HYDROCHLORIDE
     Indication: Keratinising squamous cell carcinoma of nasopharynx
     Dosage: 1.2 GRAM, D1/D8
     Route: 041
     Dates: start: 20240603

REACTIONS (3)
  - Myelosuppression [Recovering/Resolving]
  - Platelet count decreased [Recovering/Resolving]
  - White blood cell count decreased [Recovering/Resolving]

NARRATIVE: CASE EVENT DATE: 20240618
